FAERS Safety Report 9068907 (Version 4)
Quarter: 2013Q1

REPORT INFORMATION
  Report Type: Spontaneous
  Country: GB (occurrence: GB)
  Receive Date: 20130128
  Receipt Date: 20130320
  Transmission Date: 20140127
  Serious: Yes (Death)
  Sender: FDA-Public Use
  Company Number: PHFR2013GB000843

PATIENT
  Age: 58 Year
  Sex: Female

DRUGS (15)
  1. GLYCOPYRRONIUM BROMIDE [Suspect]
  2. ONBREZ [Suspect]
  3. ETHAMBUTOL [Concomitant]
     Dosage: 800 MG, QD
     Route: 048
  4. PYRIDOXINE [Concomitant]
     Dosage: 10 MG, QD
     Route: 048
  5. RIFAMPICIN [Concomitant]
     Dosage: 600 MG, QD
     Route: 048
  6. MOXIFLOXACIN [Concomitant]
     Dosage: 400 MG, QD
     Route: 048
  7. STREPTOMYCIN [Concomitant]
     Dosage: 500 MG, QOD
     Route: 030
  8. AZITHROMYCIN [Concomitant]
     Dosage: 500 MG, QD
     Route: 048
  9. FORTISIP [Concomitant]
     Dosage: UNK
     Route: 048
  10. OMEPRAZOLE [Concomitant]
     Dosage: 20 MG, QD
     Route: 048
  11. FORCEVAL [Concomitant]
     Dosage: UNK
     Route: 048
  12. THIAMINE [Concomitant]
     Dosage: 100 MG, BID
     Route: 048
  13. CITALOPRAM [Concomitant]
     Dosage: 20 MG, QD
     Route: 048
  14. CODEINE [Concomitant]
     Indication: PAIN
     Dosage: UNK
     Route: 048
  15. PARACETAMOL [Concomitant]
     Indication: PAIN
     Dosage: 1 G, QID
     Route: 048

REACTIONS (3)
  - Bacterial infection [Fatal]
  - Lung neoplasm malignant [Fatal]
  - Pulmonary embolism [Fatal]
